FAERS Safety Report 23073713 (Version 1)
Quarter: 2023Q4

REPORT INFORMATION
  Report Type: Spontaneous
  Country: US (occurrence: US)
  Receive Date: 20231017
  Receipt Date: 20231017
  Transmission Date: 20240110
  Serious: No
  Sender: FDA-Public Use
  Company Number: US-GILEAD-2023-0647392

PATIENT
  Sex: Female

DRUGS (3)
  1. SOFOSBUVIR\VELPATASVIR [Suspect]
     Active Substance: SOFOSBUVIR\VELPATASVIR
     Indication: Hepatitis C
     Dosage: UNK
     Route: 065
  2. AMOXICILLIN SODIUM [Concomitant]
     Active Substance: AMOXICILLIN SODIUM
  3. ETODOLAC [Concomitant]
     Active Substance: ETODOLAC

REACTIONS (1)
  - Tooth infection [Not Recovered/Not Resolved]
